FAERS Safety Report 19586880 (Version 2)
Quarter: 2021Q3

REPORT INFORMATION
  Report Type: Report from Study
  Country: CO (occurrence: CO)
  Receive Date: 20210721
  Receipt Date: 20210903
  Transmission Date: 20211014
  Serious: Yes (Other)
  Sender: FDA-Public Use
  Company Number: CO-JNJFOC-20210736084

PATIENT
  Age: 46 Year
  Sex: Male
  Weight: 64 kg

DRUGS (3)
  1. TREMFYA [Suspect]
     Active Substance: GUSELKUMAB
  2. TREMFYA [Suspect]
     Active Substance: GUSELKUMAB
  3. TREMFYA [Suspect]
     Active Substance: GUSELKUMAB
     Indication: PSORIASIS
     Dosage: ALSO GIVEN THAT THE THERAPY START DATE AS 11/SEP/2020?THE MOST RECENT ADMINISTRATION OF GUSELKUMAB W
     Route: 058
     Dates: start: 20200810

REACTIONS (3)
  - COVID-19 pneumonia [Recovering/Resolving]
  - Respiratory distress [Recovering/Resolving]
  - Product dose omission issue [Unknown]

NARRATIVE: CASE EVENT DATE: 20210518
